FAERS Safety Report 11704179 (Version 2)
Quarter: 2015Q4

REPORT INFORMATION
  Report Type: Report from Study
  Country: AR (occurrence: AR)
  Receive Date: 20151106
  Receipt Date: 20151123
  Transmission Date: 20160304
  Serious: Yes (Hospitalization)
  Sender: FDA-Public Use
  Company Number: PHHY2015AR144370

PATIENT
  Sex: Male

DRUGS (1)
  1. ACLASTA [Suspect]
     Active Substance: ZOLEDRONIC ACID
     Indication: FIBROUS DYSPLASIA OF BONE
     Dosage: EVERY 6 MONTHS
     Route: 065

REACTIONS (3)
  - Osteomyelitis [Recovering/Resolving]
  - Inappropriate schedule of drug administration [Unknown]
  - Product use issue [Unknown]
